FAERS Safety Report 11115092 (Version 1)
Quarter: 2015Q2

REPORT INFORMATION
  Report Type: Report from Study
  Country: FR (occurrence: FR)
  Receive Date: 20150515
  Receipt Date: 20150515
  Transmission Date: 20150821
  Serious: Yes (Hospitalization)
  Sender: FDA-Public Use
  Company Number: FR-GLAXOSMITHKLINE-FR2015GSK064577

PATIENT
  Age: 81 Year
  Sex: Female

DRUGS (7)
  1. AMLOR [Concomitant]
     Active Substance: AMLODIPINE BESYLATE
  2. ELISOR [Concomitant]
     Active Substance: PRAVASTATIN SODIUM
  3. ATENOLOL. [Concomitant]
     Active Substance: ATENOLOL
  4. PLAVIX [Concomitant]
     Active Substance: CLOPIDOGREL BISULFATE
  5. KARDEGIC [Concomitant]
     Active Substance: ASPIRIN LYSINE
  6. HYPERIUM [Concomitant]
     Active Substance: RILMENIDINE PHOSPHATE
  7. OMEGA-3-ACID ETHYL ESTERS. [Suspect]
     Active Substance: OMEGA-3-ACID ETHYL ESTERS
     Indication: ISCHAEMIC HEART DISEASE PROPHYLAXIS
     Dosage: UNK
     Dates: start: 20060823, end: 20120816

REACTIONS (1)
  - Fracture [Unknown]

NARRATIVE: CASE EVENT DATE: 20080325
